FAERS Safety Report 4816926-0 (Version None)
Quarter: 2005Q4

REPORT INFORMATION
  Report Type: 
  Country: None (occurrence: None)
  Receive Date: 20051101
  Receipt Date: 20051021
  Transmission Date: 20060501
  Serious: No
  Sender: FDA-Public Use
  Company Number: PHEH2005US11772

PATIENT
  Age: 57 Year
  Sex: Male

DRUGS (1)
  1. TRILEPTAL [Suspect]
     Indication: BIPOLAR DISORDER
     Dosage: 600 MG, BID
     Route: 048
     Dates: start: 20050921

REACTIONS (1)
  - BLEEDING TIME PROLONGED [None]
